FAERS Safety Report 20429064 (Version 2)
Quarter: 2022Q1

REPORT INFORMATION
  Report Type: Spontaneous
  Country: IN (occurrence: IN)
  Receive Date: 20220204
  Receipt Date: 20220222
  Transmission Date: 20220423
  Serious: Yes (Hospitalization, Disabling, Other)
  Sender: FDA-Public Use
  Company Number: IN-MLMSERVICE-20220120-3326739-1

PATIENT
  Age: 40 Year
  Sex: Female

DRUGS (8)
  1. CYCLOPHOSPHAMIDE [Suspect]
     Active Substance: CYCLOPHOSPHAMIDE
     Indication: Hormone receptor positive HER2 negative breast cancer
     Dosage: UNK UNK, QCY
  2. CYCLOPHOSPHAMIDE [Suspect]
     Active Substance: CYCLOPHOSPHAMIDE
     Indication: Invasive ductal breast carcinoma
  3. DOCETAXEL [Suspect]
     Active Substance: DOCETAXEL
     Indication: Invasive ductal breast carcinoma
     Dosage: 4 CYCLES OF 3 WEEKLY, QCY
  4. DOCETAXEL [Suspect]
     Active Substance: DOCETAXEL
     Indication: Hormone receptor positive HER2 negative breast cancer
  5. ADRIAMYCIN [Suspect]
     Active Substance: DOXORUBICIN HYDROCHLORIDE
     Indication: Hormone receptor positive HER2 negative breast cancer
     Dosage: UNK, QCY
  6. ADRIAMYCIN [Suspect]
     Active Substance: DOXORUBICIN HYDROCHLORIDE
     Indication: Invasive ductal breast carcinoma
  7. TAMOXIFEN [Concomitant]
     Active Substance: TAMOXIFEN
     Indication: Hormone receptor positive HER2 negative breast cancer
     Dosage: UNK
  8. TAMOXIFEN [Concomitant]
     Active Substance: TAMOXIFEN
     Indication: Invasive ductal breast carcinoma

REACTIONS (5)
  - Acute promyelocytic leukaemia [Unknown]
  - Depressed level of consciousness [Unknown]
  - Bicytopenia [Unknown]
  - Subarachnoid haemorrhage [Unknown]
  - Blindness [Unknown]
